FAERS Safety Report 12124274 (Version 1)
Quarter: 2016Q1

REPORT INFORMATION
  Report Type: Spontaneous
  Country: US (occurrence: US)
  Receive Date: 20160229
  Receipt Date: 20160229
  Transmission Date: 20160526
  Serious: No
  Sender: FDA-Public Use
  Company Number: US-MYLANLABS-2015M1033536

PATIENT
  Sex: Male

DRUGS (2)
  1. TRAMADOL HYDROCHLORIDE TABLETS, USP [Suspect]
     Active Substance: TRAMADOL HYDROCHLORIDE
     Dosage: UNK
     Route: 048
  2. ATENOLOL TABLETS, USP [Suspect]
     Active Substance: ATENOLOL
     Dosage: UNK
     Route: 048

REACTIONS (2)
  - Reaction to drug excipients [Not Recovered/Not Resolved]
  - Pruritus [Not Recovered/Not Resolved]
